FAERS Safety Report 6123428-0 (Version None)
Quarter: 2009Q1

REPORT INFORMATION
  Report Type: 
  Country: None (occurrence: None)
  Receive Date: 20090318
  Receipt Date: 20090306
  Transmission Date: 20090719
  Serious: Yes (Hospitalization)
  Sender: FDA-Public Use
  Company Number: FR-B.I. PHARMACEUTICALS,INC./RIDGEFIELD-2009-FF-00177FF

PATIENT
  Sex: Male

DRUGS (2)
  1. VIRAMUNE [Suspect]
     Indication: HIV INFECTION
     Dosage: 1 DOSE DAILY
     Route: 048
     Dates: start: 20050101
  2. KIVEXA [Concomitant]
     Indication: HIV INFECTION
     Route: 048
     Dates: start: 20050101

REACTIONS (1)
  - PHLEBITIS [None]
